FAERS Safety Report 16883919 (Version 1)
Quarter: 2019Q4

REPORT INFORMATION
  Report Type: Spontaneous
  Country: US (occurrence: US)
  Receive Date: 20191004
  Receipt Date: 20191004
  Transmission Date: 20200122
  Serious: Yes (Other)
  Sender: FDA-Public Use
  Company Number: US-MELINTA THERAPEUTICS, INC-US-MLNT-19-00086

PATIENT
  Age: 15 Year
  Sex: Female

DRUGS (2)
  1. ORBACTIV [Suspect]
     Active Substance: ORITAVANCIN
     Indication: STAPHYLOCOCCAL INFECTION
  2. ORBACTIV [Suspect]
     Active Substance: ORITAVANCIN
     Indication: POST PROCEDURAL INFECTION
     Route: 041

REACTIONS (7)
  - Hypotension [Recovering/Resolving]
  - Nausea [Unknown]
  - Diarrhoea [Unknown]
  - Vomiting [Unknown]
  - Rash [Unknown]
  - Product use issue [Unknown]
  - Abdominal pain [Unknown]
